FAERS Safety Report 14516763 (Version 1)
Quarter: 2018Q1

REPORT INFORMATION
  Report Type: Other
  Country: TN (occurrence: TN)
  Receive Date: 20180212
  Receipt Date: 20180212
  Transmission Date: 20180509
  Serious: Yes (Other)
  Sender: FDA-Public Use
  Company Number: TN-ORCHID HEALTHCARE-2041751

PATIENT
  Age: 62 Year
  Sex: Male

DRUGS (3)
  1. LEVOFLOXACIN. [Suspect]
     Active Substance: LEVOFLOXACIN
     Indication: PNEUMONIA
     Route: 065
  2. AMOXICILLIN. [Concomitant]
     Active Substance: AMOXICILLIN
     Route: 042
  3. CLAVULANIC ACID [Concomitant]
     Active Substance: CLAVULANIC ACID
     Route: 042

REACTIONS (2)
  - Delirium [Recovering/Resolving]
  - Psychotic disorder [None]
